FAERS Safety Report 23977224 (Version 1)
Quarter: 2024Q2

REPORT INFORMATION
  Report Type: Spontaneous
  Country: US (occurrence: US)
  Receive Date: 20240614
  Receipt Date: 20240614
  Transmission Date: 20240716
  Serious: Yes (Hospitalization, Other)
  Sender: FDA-Public Use
  Company Number: US-INSUD PHARMA-2406US04744

PATIENT

DRUGS (1)
  1. ISIBLOOM [Suspect]
     Active Substance: DESOGESTREL\ETHINYL ESTRADIOL
     Indication: Contraception
     Dosage: UNK, DAILY
     Route: 048

REACTIONS (9)
  - Erythema multiforme [Recovered/Resolved]
  - Dermatitis bullous [Recovered/Resolved]
  - Oral mucosa erosion [Recovered/Resolved]
  - Target skin lesion [Recovered/Resolved]
  - Papule [Recovered/Resolved]
  - Skin plaque [Recovered/Resolved]
  - Conjunctivitis [Recovered/Resolved]
  - Vulvovaginal inflammation [Recovered/Resolved]
  - Mouth ulceration [Recovered/Resolved]
